FAERS Safety Report 4466285-0 (Version None)
Quarter: 2004Q3

REPORT INFORMATION
  Report Type: 
  Country: None (occurrence: None)
  Receive Date: 20040930
  Receipt Date: 20040915
  Transmission Date: 20050211
  Serious: Yes (Other)
  Sender: FDA-Public Use
  Company Number: CH-AMGEN-US092698

PATIENT
  Sex: 0

DRUGS (2)
  1. ENBREL [Suspect]
  2. UNSPECIFIED MEDICATION (ANTINEOPLASTIC AGENTS) [Concomitant]

REACTIONS (1)
  - PULMONARY GRANULOMA [None]
